FAERS Safety Report 7869204-X (Version None)
Quarter: 2011Q4

REPORT INFORMATION
  Report Type: 
  Country: None (occurrence: None)
  Receive Date: 20111024
  Receipt Date: 20111013
  Transmission Date: 20120403
  Serious: Yes (Hospitalization)
  Sender: FDA-Public Use
  Company Number: WAES 1110USA01830

PATIENT
  Age: 61 Year
  Sex: Male
  Weight: 91.173 kg

DRUGS (26)
  1. PANTHENOL [Concomitant]
  2. SIMVASTATIN [Concomitant]
  3. LOVENOX [Concomitant]
  4. GLYCERIN [Concomitant]
  5. SULFAMETHOXAZOLE (+) TRIMETHOPRI [Concomitant]
  6. ASPIRIN [Concomitant]
  7. THIAMINE HYDROCHLORIDE [Concomitant]
  8. FOLIC ACID [Concomitant]
  9. LIDOCAINE [Concomitant]
  10. METFORMIN HCL [Concomitant]
  11. CRIZOTINIB 250 MG [Suspect]
     Indication: NON-SMALL CELL LUNG CANCER
     Dosage: 250 MG/BID/PO
     Route: 048
     Dates: start: 20090817
  12. ATIVAN [Concomitant]
  13. NEURONTIN [Concomitant]
  14. OXYCONTIN [Concomitant]
  15. ASCORBIC ACID [Concomitant]
  16. DOCUSATE SODIUM [Concomitant]
  17. NIACINAMIDE [Concomitant]
  18. OXYCODONE HCL [Concomitant]
  19. VITAMIN A [Concomitant]
  20. DECADRON [Suspect]
     Indication: METASTASES TO CENTRAL NERVOUS SYSTEM
     Dosage: 1 MG/DAILY/PO ; 4 MG/BID/PO ; 2 MG/PM/PO
     Route: 048
     Dates: start: 20110801, end: 20110914
  21. DECADRON [Suspect]
     Indication: METASTASES TO CENTRAL NERVOUS SYSTEM
     Dosage: 1 MG/DAILY/PO ; 4 MG/BID/PO ; 2 MG/PM/PO
     Route: 048
     Dates: start: 20110926
  22. RIBOFLAVIN [Concomitant]
  23. INSULIN [Concomitant]
  24. TYLENOL-500 [Concomitant]
  25. ERGOCALCIFEROL [Concomitant]
  26. OMEPRAZOLE [Concomitant]

REACTIONS (24)
  - DISEASE PROGRESSION [None]
  - NON-SMALL CELL LUNG CANCER [None]
  - DEHYDRATION [None]
  - HEADACHE [None]
  - CONFUSIONAL STATE [None]
  - HYPOPHAGIA [None]
  - RADIATION NECROSIS [None]
  - ATRIAL FIBRILLATION [None]
  - SCIATICA [None]
  - HAEMATOMA [None]
  - POST PROCEDURAL COMPLICATION [None]
  - ASTHENIA [None]
  - PULMONARY EMBOLISM [None]
  - POSTICTAL STATE [None]
  - LEUKOENCEPHALOPATHY [None]
  - FATIGUE [None]
  - CONDITION AGGRAVATED [None]
  - PERIORBITAL OEDEMA [None]
  - SUPRAVENTRICULAR TACHYCARDIA [None]
  - BRAIN OEDEMA [None]
  - VISUAL IMPAIRMENT [None]
  - METASTASES TO CENTRAL NERVOUS SYSTEM [None]
  - NAUSEA [None]
  - ABDOMINAL DISCOMFORT [None]
